FAERS Safety Report 5883495-6 (Version None)
Quarter: 2008Q3

REPORT INFORMATION
  Report Type: 
  Country: None (occurrence: None)
  Receive Date: 20080915
  Receipt Date: 20080908
  Transmission Date: 20090109
  Serious: Yes (Other)
  Sender: FDA-Public Use
  Company Number: PHHY2008FR20764

PATIENT
  Sex: Female

DRUGS (4)
  1. EXFORGE [Suspect]
     Dosage: 160/5 MG PER DAY
  2. CRESTOR [Concomitant]
     Indication: HYPERCHOLESTEROLAEMIA
  3. ATENOLOL [Concomitant]
  4. FLECAINE [Concomitant]

REACTIONS (4)
  - ARTHRALGIA [None]
  - MYALGIA [None]
  - OEDEMA PERIPHERAL [None]
  - WEIGHT INCREASED [None]
